FAERS Safety Report 9477074 (Version 1)
Quarter: 2013Q3

REPORT INFORMATION
  Report Type: Spontaneous
  Country: US (occurrence: US)
  Receive Date: 20130826
  Receipt Date: 20130826
  Transmission Date: 20140515
  Serious: Yes (Hospitalization)
  Sender: FDA-Public Use
  Company Number: US-B.I. PHARMACEUTICALS,INC./RIDGEFIELD-2013-BI-25530BP

PATIENT
  Sex: Female

DRUGS (4)
  1. COMBIVENT [Suspect]
     Indication: CHRONIC OBSTRUCTIVE PULMONARY DISEASE
     Dosage: STRENGTH: 20 MCG / 100 MCG;
     Route: 055
     Dates: start: 2008, end: 201305
  2. TRAMADOL [Concomitant]
     Indication: BACK PAIN
     Route: 048
  3. TRAMADOL [Concomitant]
     Indication: ARTHRALGIA
  4. GABAPENTIN [Concomitant]
     Indication: INTERVERTEBRAL DISC INJURY
     Route: 048

REACTIONS (5)
  - Lung infection [Recovered/Resolved]
  - Oxygen saturation decreased [Recovered/Resolved]
  - Depression [Not Recovered/Not Resolved]
  - Insomnia [Not Recovered/Not Resolved]
  - Candida infection [Recovered/Resolved]
